FAERS Safety Report 19442871 (Version 2)
Quarter: 2021Q3

REPORT INFORMATION
  Report Type: Spontaneous
  Country: GB (occurrence: GB)
  Receive Date: 20210621
  Receipt Date: 20210707
  Transmission Date: 20211014
  Serious: Yes (Life-Threatening, Other)
  Sender: FDA-Public Use
  Company Number: GB-PFIZER INC-2021674713

PATIENT
  Age: 22 Year
  Sex: Male
  Weight: 75 kg

DRUGS (3)
  1. LIGNOCAINE HCL [Concomitant]
     Active Substance: LIDOCAINE HYDROCHLORIDE
     Indication: PAIN
     Dosage: 0.5 ML
     Route: 042
  2. PROPOFOL. [Suspect]
     Active Substance: PROPOFOL
     Indication: ANAESTHESIA
     Dosage: 7 ML
  3. FENTANYL CITRATE. [Suspect]
     Active Substance: FENTANYL CITRATE
     Indication: PAIN
     Dosage: 50 UG (THROUGH THE CANNULA)
     Route: 042

REACTIONS (2)
  - Seizure [Recovering/Resolving]
  - Cardiac arrest [Recovering/Resolving]
